FAERS Safety Report 14607865 (Version 2)
Quarter: 2018Q2

REPORT INFORMATION
  Report Type: Spontaneous
  Country: US (occurrence: US)
  Receive Date: 20180307
  Receipt Date: 20180422
  Transmission Date: 20180711
  Serious: Yes (Other)
  Sender: FDA-Public Use
  Company Number: US-APOTEX-2018AP007214

PATIENT
  Sex: Female

DRUGS (7)
  1. AMOXICILLIN. [Suspect]
     Active Substance: AMOXICILLIN
     Indication: SINUSITIS
     Dosage: UNK
     Route: 065
  2. AMOXICILLIN. [Suspect]
     Active Substance: AMOXICILLIN
     Indication: SINUSITIS
  3. AMOXICILLIN. [Suspect]
     Active Substance: AMOXICILLIN
     Indication: EAR INFECTION
  4. OSCAL [Suspect]
     Active Substance: CALCIUM CARBONATE
     Indication: PRODUCT USED FOR UNKNOWN INDICATION
     Dosage: UNK
     Route: 065
  5. LISINOPRIL. [Concomitant]
     Active Substance: LISINOPRIL
     Indication: PRODUCT USED FOR UNKNOWN INDICATION
     Dosage: 10 MG, UNK
     Route: 065
  6. MULTIVITAMIN                       /00097801/ [Concomitant]
     Active Substance: VITAMINS
     Indication: PRODUCT USED FOR UNKNOWN INDICATION
     Dosage: UNK
     Route: 065
  7. ATORVASTATIN [Suspect]
     Active Substance: ATORVASTATIN
     Indication: PRODUCT USED FOR UNKNOWN INDICATION
     Dosage: UNK
     Route: 065

REACTIONS (6)
  - Oedema mucosal [Unknown]
  - Respiratory tract oedema [Unknown]
  - Oedema mouth [Unknown]
  - Face oedema [Unknown]
  - Lip oedema [Unknown]
  - Drug hypersensitivity [Unknown]
